FAERS Safety Report 6079968-6 (Version None)
Quarter: 2009Q1

REPORT INFORMATION
  Report Type: 
  Country: None (occurrence: None)
  Receive Date: 20090217
  Receipt Date: 20081027
  Transmission Date: 20090719
  Serious: No
  Sender: FDA-Public Use
  Company Number: A0753671A

PATIENT
  Sex: Female

DRUGS (4)
  1. COREG CR [Suspect]
     Indication: HYPERTENSION
  2. AMLODIPINE [Concomitant]
  3. WATER PILL [Concomitant]
  4. THYROID MEDICATION [Concomitant]

REACTIONS (1)
  - HYPERSOMNIA [None]
